FAERS Safety Report 7201319-1 (Version None)
Quarter: 2010Q4

REPORT INFORMATION
  Report Type: 
  Country: None (occurrence: None)
  Receive Date: 20101227
  Receipt Date: 20101227
  Transmission Date: 20110411
  Serious: Yes (Hospitalization, Other)
  Sender: FDA-Public Use
  Company Number: None

PATIENT
  Age: 46 Year
  Sex: Female
  Weight: 56.246 kg

DRUGS (2)
  1. ALLER-TEC 10MG PERRIGO [Suspect]
     Indication: HYPERSENSITIVITY
     Dosage: ONE DAILY PO
     Route: 048
     Dates: start: 20090901, end: 20100801
  2. ALLER-TEC [Suspect]

REACTIONS (8)
  - ASTHENIA [None]
  - DEPRESSION [None]
  - HYPOAESTHESIA [None]
  - PARAESTHESIA [None]
  - PRESYNCOPE [None]
  - PRODUCT QUALITY ISSUE [None]
  - PRODUCT SUBSTITUTION ISSUE [None]
  - VERTIGO [None]
